FAERS Safety Report 13930327 (Version 3)
Quarter: 2017Q3

REPORT INFORMATION
  Report Type: Spontaneous
  Country: JP (occurrence: JP)
  Receive Date: 20170901
  Receipt Date: 20170922
  Transmission Date: 20171127
  Serious: Yes (Death, Life-Threatening)
  Sender: FDA-Public Use
  Company Number: PHJP2016JP030261

PATIENT
  Age: 39 Year
  Sex: Male
  Weight: 59 kg

DRUGS (2)
  1. PROHEPARUM [Concomitant]
     Active Substance: CHOLINE BITARTRATE\CYSTEINE\INOSITOL\MAMMAL LIVER
     Indication: PRODUCT USED FOR UNKNOWN INDICATION
     Dosage: 1 DF, TID
     Route: 048
     Dates: start: 20161019
  2. VOTRIENT [Suspect]
     Active Substance: PAZOPANIB HYDROCHLORIDE
     Indication: OSTEOSARCOMA
     Dosage: 600 MG, QD
     Route: 048
     Dates: start: 20161019, end: 20161019

REACTIONS (10)
  - Depressed level of consciousness [Fatal]
  - Metastases to central nervous system [Fatal]
  - Tremor [Unknown]
  - Hypoaesthesia [Fatal]
  - Respiratory arrest [Fatal]
  - Tachycardia [Unknown]
  - Cardiac arrest [Fatal]
  - Vomiting [Unknown]
  - Cerebral haemorrhage [Fatal]
  - Aphasia [Fatal]

NARRATIVE: CASE EVENT DATE: 20161019
